FAERS Safety Report 22009853 (Version 1)
Quarter: 2023Q1

REPORT INFORMATION
  Report Type: Spontaneous
  Country: US (occurrence: US)
  Receive Date: 20230220
  Receipt Date: 20230220
  Transmission Date: 20230417
  Serious: Yes (Hospitalization, Other)
  Sender: FDA-Public Use
  Company Number: US-AMGEN-USASP2023026074

PATIENT
  Age: 80 Year
  Sex: Male

DRUGS (2)
  1. RITUXIMAB [Suspect]
     Active Substance: RITUXIMAB
     Indication: Hairy cell leukaemia recurrent
     Dosage: UNK
     Route: 065
  2. PENTOSTATIN [Concomitant]
     Active Substance: PENTOSTATIN
     Indication: Hairy cell leukaemia recurrent
     Dosage: UNK

REACTIONS (8)
  - Hairy cell leukaemia recurrent [Recovered/Resolved]
  - Haemorrhage intracranial [Recovered/Resolved]
  - Leukostasis syndrome [Recovering/Resolving]
  - Retinal haemorrhage [Unknown]
  - Febrile neutropenia [Unknown]
  - Thrombocytopenia [Unknown]
  - Epistaxis [Unknown]
  - Off label use [Unknown]
